FAERS Safety Report 20371787 (Version 3)
Quarter: 2022Q1

REPORT INFORMATION
  Report Type: Spontaneous
  Country: JP (occurrence: JP)
  Receive Date: 20220124
  Receipt Date: 20220321
  Transmission Date: 20220423
  Serious: Yes (Life-Threatening)
  Sender: FDA-Public Use
  Company Number: JP-ferring-EVA202200079FERRINGPH

PATIENT

DRUGS (3)
  1. DINOPROSTONE [Suspect]
     Active Substance: DINOPROSTONE
     Indication: Labour induction
     Dosage: UNK
     Route: 065
     Dates: start: 20220111, end: 20220111
  2. HERBALS [Concomitant]
     Active Substance: HERBALS
     Indication: Oedema
     Route: 065
  3. HERBALS [Concomitant]
     Active Substance: HERBALS
     Indication: Protein urine

REACTIONS (1)
  - Premature separation of placenta [Recovered/Resolved]

NARRATIVE: CASE EVENT DATE: 20220111
